FAERS Safety Report 23778138 (Version 3)
Quarter: 2024Q2

REPORT INFORMATION
  Report Type: Spontaneous
  Country: CN (occurrence: CN)
  Receive Date: 20240424
  Receipt Date: 20240507
  Transmission Date: 20240715
  Serious: Yes (Death, Hospitalization, Other)
  Sender: FDA-Public Use
  Company Number: CN-BAYER-2024A060012

PATIENT
  Age: 55 Year
  Sex: Male

DRUGS (2)
  1. NEXAVAR [Suspect]
     Active Substance: SORAFENIB
     Indication: Hepatocellular carcinoma
     Dosage: 200 MG, BID
     Route: 048
     Dates: start: 20200215
  2. NEXAVAR [Suspect]
     Active Substance: SORAFENIB
     Indication: Targeted cancer therapy

REACTIONS (7)
  - Acute myocardial infarction [Fatal]
  - Hypertension [Recovering/Resolving]
  - Thalamic infarction [Recovering/Resolving]
  - Retinal artery occlusion [Recovering/Resolving]
  - Coronary artery stenosis [Recovering/Resolving]
  - Arteriosclerosis coronary artery [Recovering/Resolving]
  - Off label use [None]

NARRATIVE: CASE EVENT DATE: 20200215
